FAERS Safety Report 11823171 (Version 1)
Quarter: 2015Q4

REPORT INFORMATION
  Report Type: Spontaneous
  Country: US (occurrence: US)
  Receive Date: 20151210
  Receipt Date: 20151210
  Transmission Date: 20160305
  Serious: No
  Sender: FDA-Public Use
  Company Number: US-ENDO PHARMACEUTICALS INC.-2015-000589

PATIENT
  Sex: Male

DRUGS (5)
  1. AMLODIPINE [Concomitant]
     Active Substance: AMLODIPINE BESYLATE
     Indication: PRODUCT USED FOR UNKNOWN INDICATION
  2. TRENTAL [Concomitant]
     Active Substance: PENTOXIFYLLINE
     Indication: ANGIOPATHY
  3. ZOLPIDEM TARTRATE TABLETS 10MG [Suspect]
     Active Substance: ZOLPIDEM TARTRATE
     Indication: INSOMNIA
     Route: 048
  4. SYNTHROID [Concomitant]
     Active Substance: LEVOTHYROXINE SODIUM
     Indication: PRODUCT USED FOR UNKNOWN INDICATION
  5. ASPIRIN EC LOW DOSE 81 MG [Concomitant]
     Indication: PRODUCT USED FOR UNKNOWN INDICATION

REACTIONS (2)
  - Drug ineffective [Recovered/Resolved]
  - Intentional product use issue [Recovered/Resolved]

NARRATIVE: CASE EVENT DATE: 20150419
